FAERS Safety Report 16137064 (Version 1)
Quarter: 2019Q1

REPORT INFORMATION
  Report Type: Report from Study
  Country: US (occurrence: US)
  Receive Date: 20190329
  Receipt Date: 20190329
  Transmission Date: 20190418
  Serious: Yes (Other)
  Sender: FDA-Public Use
  Company Number: US-UCBSA-2019012732

PATIENT
  Age: 3 Year
  Sex: Male

DRUGS (8)
  1. LEVETIRACETAM. [Suspect]
     Active Substance: LEVETIRACETAM
     Indication: TONIC CONVULSION
  2. ONFI [Suspect]
     Active Substance: CLOBAZAM
     Indication: ATONIC SEIZURES
     Dosage: UNK
  3. ONFI [Suspect]
     Active Substance: CLOBAZAM
     Indication: TONIC CONVULSION
  4. VALPROATE [Suspect]
     Active Substance: VALPROIC ACID
     Indication: TONIC CONVULSION
     Dosage: UNK
  5. VALPROATE [Suspect]
     Active Substance: VALPROIC ACID
     Indication: ATONIC SEIZURES
  6. LEVETIRACETAM. [Suspect]
     Active Substance: LEVETIRACETAM
     Indication: ATONIC SEIZURES
     Dosage: UNK
  7. DEXAMETHASONE. [Concomitant]
     Active Substance: DEXAMETHASONE
     Indication: PRODUCT USED FOR UNKNOWN INDICATION
     Dosage: UNK
  8. PREDNISONE. [Concomitant]
     Active Substance: PREDNISONE
     Indication: PRODUCT USED FOR UNKNOWN INDICATION
     Dosage: UNK

REACTIONS (2)
  - Multiple-drug resistance [Unknown]
  - Seizure [Unknown]
